FAERS Safety Report 12465880 (Version 1)
Quarter: 2016Q2

REPORT INFORMATION
  Report Type: Report from Study
  Country: US (occurrence: US)
  Receive Date: 20160614
  Receipt Date: 20160614
  Transmission Date: 20160815
  Serious: Yes (Hospitalization)
  Sender: FDA-Public Use
  Company Number: US-ACTELION-A-US2016-137574

PATIENT
  Age: 60 Year
  Sex: Female

DRUGS (14)
  1. PLAQUENIL [Concomitant]
     Active Substance: HYDROXYCHLOROQUINE SULFATE
     Dosage: 200 MG, QPM
     Dates: start: 2006
  2. TRACLEER [Suspect]
     Active Substance: BOSENTAN
     Indication: PULMONARY ARTERIAL HYPERTENSION
     Dosage: UNK, BID
     Route: 048
     Dates: start: 2011, end: 2013
  3. DEXILANT [Concomitant]
     Active Substance: DEXLANSOPRAZOLE
     Dosage: 60 MG, QD
     Dates: start: 2005
  4. MULTIVITAMINS, COMBINATIONS [Concomitant]
     Dosage: UNK
     Dates: start: 2010
  5. ASA [Concomitant]
     Active Substance: ASPIRIN
     Dosage: 81 MG, QD
  6. VITAMIN D3 [Concomitant]
     Active Substance: CHOLECALCIFEROL
     Dosage: 1000 IU, QD
     Dates: start: 2013
  7. VITAMIN E [Concomitant]
     Active Substance: .ALPHA.-TOCOPHEROL
     Dosage: 1000 IU, QD
     Dates: start: 2013
  8. TYVASO [Concomitant]
     Active Substance: TREPROSTINIL
     Dosage: UNK
     Dates: start: 2010
  9. RANITIDINE. [Concomitant]
     Active Substance: RANITIDINE
     Dosage: 150 MG, QD
     Dates: start: 2015
  10. PILOCARPINE. [Concomitant]
     Active Substance: PILOCARPINE
     Dosage: 5 MG, QD
     Dates: start: 201601
  11. IRON [Concomitant]
     Active Substance: IRON
     Dosage: 65 MG, BID
     Dates: start: 2010
  12. AMBIEN [Concomitant]
     Active Substance: ZOLPIDEM TARTRATE
     Dosage: 10 MG, QPM, PRN
     Dates: start: 2006
  13. COQ 10 [Concomitant]
     Active Substance: UBIDECARENONE
     Dosage: 100 MG, QD
     Dates: start: 2012
  14. EVOXAC [Concomitant]
     Active Substance: CEVIMELINE HYDROCHLORIDE
     Dosage: UNK, TID
     Dates: start: 2006, end: 201601

REACTIONS (5)
  - Wound infection [Recovering/Resolving]
  - Arthralgia [Recovering/Resolving]
  - Lung disorder [Not Recovered/Not Resolved]
  - Calcinosis [Unknown]
  - Knee arthroplasty [Unknown]

NARRATIVE: CASE EVENT DATE: 2011
